FAERS Safety Report 22331067 (Version 1)
Quarter: 2023Q2

REPORT INFORMATION
  Report Type: Spontaneous
  Country: US (occurrence: None)
  Receive Date: 20230515
  Receipt Date: 20230515
  Transmission Date: 20230721
  Serious: No
  Sender: FDA-Public Use
  Company Number: None

PATIENT
  Age: 47 Year
  Sex: Female

DRUGS (1)
  1. OCREVUS [Suspect]
     Active Substance: OCRELIZUMAB
     Indication: Multiple sclerosis

REACTIONS (5)
  - Chest pain [None]
  - Personality change [None]
  - Thyroid mass [None]
  - Alopecia [None]
  - Weight decreased [None]

NARRATIVE: CASE EVENT DATE: 20230515
